FAERS Safety Report 8641598 (Version 2)
Quarter: 2012Q4

REPORT INFORMATION
  Report Type: Spontaneous
  Country: US (occurrence: None)
  Receive Date: 20120614
  Receipt Date: 20121011
  Transmission Date: 20130627
  Serious: Yes (Hospitalization, Other)
  Sender: FDA-Public Use
  Company Number: JPI-P-021735

PATIENT
  Age: 43 Year
  Sex: Female

DRUGS (3)
  1. XYREM [Suspect]
     Indication: NARCOLEPSY
     Dosage: 9 GM (4.5 GM, 2 IN 1 D), ORAL
     Dates: start: 20070914
  2. XYREM [Suspect]
     Indication: NARCOLEPSY
     Route: 048
  3. XYREM [Suspect]
     Indication: NARCOLEPSY
     Dosage: 11 GM (5.5 GM, 2 IN 1 D), ORAL
     Dates: start: 20101105

REACTIONS (10)
  - COLITIS MICROSCOPIC [None]
  - AUTOIMMUNE DISORDER [None]
  - CONDITION AGGRAVATED [None]
  - LIMB INJURY [None]
  - MEDICAL DEVICE COMPLICATION [None]
  - EXOSTOSIS [None]
  - FEELING ABNORMAL [None]
  - INSOMNIA [None]
  - LIGAMENT RUPTURE [None]
  - GASTROENTERITIS EOSINOPHILIC [None]
